FAERS Safety Report 7687855-2 (Version None)
Quarter: 2011Q3

REPORT INFORMATION
  Report Type: 
  Country: None (occurrence: None)
  Receive Date: 20110817
  Receipt Date: 20110808
  Transmission Date: 20111222
  Serious: Yes (Hospitalization, Other)
  Sender: FDA-Public Use
  Company Number: US-CEPHALON-US023211

PATIENT
  Sex: Female
  Weight: 70 kg

DRUGS (6)
  1. PROVIGIL [Suspect]
     Indication: MULTIPLE SCLEROSIS
     Route: 048
     Dates: start: 20020101, end: 20030101
  2. PROVIGIL [Suspect]
     Indication: ASTHENIA
     Route: 048
     Dates: start: 20030101
  3. BACLOFEN [Concomitant]
     Indication: MUSCLE RELAXANT THERAPY
     Route: 048
     Dates: start: 20060101
  4. LEXAPRO [Concomitant]
     Indication: DEPRESSION
     Route: 048
     Dates: start: 20060101
  5. MIRTAZAPINE [Concomitant]
     Indication: DEPRESSION
     Route: 048
  6. AVONEX [Concomitant]
     Indication: MULTIPLE SCLEROSIS
     Route: 048
     Dates: start: 20030101

REACTIONS (14)
  - DYSPNOEA [None]
  - KIDNEY INFECTION [None]
  - HALLUCINATION [None]
  - DYSPHONIA [None]
  - LIP DRY [None]
  - NASAL CONGESTION [None]
  - DEHYDRATION [None]
  - NAUSEA [None]
  - BRONCHITIS [None]
  - PHARYNGEAL OEDEMA [None]
  - DRY MOUTH [None]
  - DRUG TOLERANCE [None]
  - DERMATITIS BULLOUS [None]
  - DIZZINESS [None]
